FAERS Safety Report 8525621-6 (Version None)
Quarter: 2012Q3

REPORT INFORMATION
  Report Type: 
  Country: None (occurrence: None)
  Receive Date: 20120710
  Receipt Date: 20120625
  Transmission Date: 20120928
  Serious: Yes (Hospitalization, Other)
  Sender: FDA-Public Use
  Company Number: DSJ-2012-11531

PATIENT
  Age: 63 Year
  Sex: Male

DRUGS (4)
  1. PARIET (RABEPRAZOLE SODIUM)(RABEPRAZOLE SODIUM) [Concomitant]
  2. AMLODIPINE [Concomitant]
  3. TRICHLORMETHIAZIDE [Concomitant]
  4. OLMESARTAN MEDOXOMIL [Suspect]
     Indication: HYPERTENSION
     Dosage: 40 MG, PER ORAL
     Route: 048
     Dates: start: 20120227, end: 20120601

REACTIONS (1)
  - HYPOGLYCAEMIA [None]
